FAERS Safety Report 6097865-7 (Version None)
Quarter: 2009Q1

REPORT INFORMATION
  Report Type: 
  Country: None (occurrence: None)
  Receive Date: 20090227
  Receipt Date: 20090223
  Transmission Date: 20090719
  Serious: Yes (Hospitalization)
  Sender: FDA-Public Use
  Company Number: BE-ASTRAZENECA-2009AC00632

PATIENT
  Age: 21502 Day
  Sex: Male
  Weight: 101 kg

DRUGS (6)
  1. CRESTOR [Interacting]
     Indication: HYPERCHOLESTEROLAEMIA
     Route: 048
     Dates: start: 20080909, end: 20080930
  2. AMLOR [Interacting]
     Indication: HYPERTENSION
     Route: 048
     Dates: start: 20071201
  3. AMLOR [Interacting]
  4. AMLOR [Interacting]
     Dates: end: 20080930
  5. COAPROVEL [Suspect]
     Dosage: 300/12.5 MG
  6. BISOPROLOL [Concomitant]

REACTIONS (2)
  - DRUG INTERACTION [None]
  - HEPATOTOXICITY [None]
